FAERS Safety Report 8153557-1 (Version None)
Quarter: 2012Q1

REPORT INFORMATION
  Report Type: 
  Country: None (occurrence: None)
  Receive Date: 20120215
  Receipt Date: 20120203
  Transmission Date: 20120608
  Serious: Yes (Other)
  Sender: FDA-Public Use
  Company Number: 2012AP000293

PATIENT
  Age: 37 Year
  Sex: Male

DRUGS (6)
  1. ALENDRONATE SODIUM [Suspect]
     Indication: OSTEOPOROSIS
     Dosage: 70 MG; QW
  2. AMIODARONE HCL [Suspect]
     Indication: ATRIAL FIBRILLATION
     Dosage: 200 MG; BID
  3. METHOTREXATE [Concomitant]
  4. PREDNISONE [Suspect]
     Indication: SARCOIDOSIS
     Dosage: 30 MG; QD
  5. PANTOPRAZOLE [Suspect]
     Indication: GASTROOESOPHAGEAL REFLUX DISEASE
  6. METOPROLOL [Suspect]
     Indication: HYPERTENSION
     Dosage: 50 MG; QD

REACTIONS (5)
  - OPTIC NEUROPATHY [None]
  - TOXICITY TO VARIOUS AGENTS [None]
  - HALO VISION [None]
  - PAPILLOEDEMA [None]
  - VISION BLURRED [None]
